FAERS Safety Report 4886311-4 (Version None)
Quarter: 2006Q1

REPORT INFORMATION
  Report Type: 
  Country: None (occurrence: None)
  Receive Date: 20060120
  Receipt Date: 20050311
  Transmission Date: 20060701
  Serious: Yes (Hospitalization, Disabling)
  Sender: FDA-Public Use
  Company Number: US-MERCK-0503USA02638

PATIENT
  Age: 71 Year
  Sex: Female
  Weight: 75 kg

DRUGS (7)
  1. VIOXX [Suspect]
     Indication: ARTHRITIS
     Route: 048
     Dates: start: 20020201, end: 20040503
  2. ASPIRIN [Concomitant]
     Route: 048
  3. PREVACID [Concomitant]
     Route: 048
  4. VITAMIN E [Concomitant]
     Route: 048
  5. FLEXERIL [Concomitant]
     Route: 048
  6. SEROQUEL [Concomitant]
     Route: 048
  7. XANAX [Concomitant]
     Route: 048

REACTIONS (8)
  - ACUTE MYOCARDIAL INFARCTION [None]
  - ANGINA UNSTABLE [None]
  - EMOTIONAL DISTRESS [None]
  - FATIGUE [None]
  - INJURY [None]
  - PAIN [None]
  - THROMBOSIS [None]
  - TRANSIENT ISCHAEMIC ATTACK [None]
